FAERS Safety Report 5905877-6 (Version None)
Quarter: 2008Q4

REPORT INFORMATION
  Report Type: 
  Country: None (occurrence: None)
  Receive Date: 20081002
  Receipt Date: 20080915
  Transmission Date: 20090506
  Serious: Yes (Other)
  Sender: FDA-Public Use
  Company Number: GB-BAYER-200827245GPV

PATIENT
  Age: 10 Year
  Sex: Female

DRUGS (14)
  1. NAPROXEN [Suspect]
     Indication: JUVENILE ARTHRITIS
     Route: 065
  2. RITUXIMAB [Suspect]
     Indication: JUVENILE ARTHRITIS
     Route: 065
  3. IBUPROFEN [Suspect]
     Indication: JUVENILE ARTHRITIS
     Route: 065
  4. CORTICOSTEROIDS [Suspect]
     Indication: JUVENILE ARTHRITIS
     Route: 065
  5. METHOTREXATE [Suspect]
     Indication: JUVENILE ARTHRITIS
     Route: 065
  6. ETANERCEPT [Suspect]
     Indication: JUVENILE ARTHRITIS
     Route: 065
  7. INFLIXIMAB [Suspect]
     Indication: JUVENILE ARTHRITIS
     Route: 065
  8. LEFLUNOMIDE [Suspect]
     Indication: JUVENILE ARTHRITIS
     Route: 065
  9. KINERET [Suspect]
     Indication: JUVENILE ARTHRITIS
     Route: 065
  10. CYCLOPHOSPHAMIDE [Suspect]
     Indication: JUVENILE ARTHRITIS
     Route: 042
  11. THALIDOMIDE [Suspect]
     Indication: JUVENILE ARTHRITIS
     Route: 065
  12. PREDNISONE [Suspect]
     Indication: JUVENILE ARTHRITIS
     Route: 065
  13. ADALIMUMAB [Suspect]
     Indication: JUVENILE ARTHRITIS
     Route: 065
  14. METHADONE HCL [Suspect]
     Indication: JUVENILE ARTHRITIS
     Route: 065

REACTIONS (1)
  - HODGKIN'S DISEASE [None]
